FAERS Safety Report 10242126 (Version 1)
Quarter: 2014Q2

REPORT INFORMATION
  Report Type: Spontaneous
  Country: CA (occurrence: CA)
  Receive Date: 20140617
  Receipt Date: 20140617
  Transmission Date: 20141212
  Serious: Yes (Other)
  Sender: FDA-Public Use
  Company Number: PHHY2014CA071888

PATIENT
  Age: 72 Year
  Sex: Female
  Weight: 70 kg

DRUGS (16)
  1. AZITHROMYCIN [Suspect]
     Indication: ATYPICAL MYCOBACTERIAL INFECTION
     Dosage: 250 MG, UNK
  2. ETHAMBUTOL [Suspect]
     Indication: ATYPICAL MYCOBACTERIAL INFECTION
     Dosage: 23 MG/KG, 1600 MG DAILY
  3. ETHAMBUTOL [Suspect]
     Dosage: 19 MG/KG, 1300 MG DAILY
  4. ISONIAZID [Suspect]
     Indication: ATYPICAL MYCOBACTERIAL INFECTION
     Dosage: 300 MG, UNK
  5. RIFAMPIN [Concomitant]
     Indication: ATYPICAL MYCOBACTERIAL INFECTION
     Dosage: 600 MG, UNK
  6. PYRIDOXINE [Concomitant]
     Indication: ATYPICAL MYCOBACTERIAL INFECTION
     Dosage: 25 MG, UNK
  7. ASPIRIN [Concomitant]
  8. AMLODIPINE [Concomitant]
  9. ATORVASTATIN [Concomitant]
  10. RAMIPRIL [Concomitant]
  11. METOPROLOL [Concomitant]
  12. HIDROCLOROTIAZIDA [Concomitant]
  13. TIOTROPIUM BROMIDE [Concomitant]
  14. BUDESONIDE [Concomitant]
  15. FORMOTEROL [Concomitant]
  16. ALBUTEROL [Concomitant]

REACTIONS (7)
  - Hemianopia heteronymous [Recovering/Resolving]
  - Visual pathway disorder [Recovered/Resolved]
  - Vision blurred [Recovering/Resolving]
  - Chromatopsia [Recovered/Resolved]
  - Visual acuity reduced [Recovered/Resolved]
  - Visual field defect [Recovered/Resolved]
  - Toxicity to various agents [Unknown]
